FAERS Safety Report 8111988-X (Version None)
Quarter: 2012Q1

REPORT INFORMATION
  Report Type: 
  Country: None (occurrence: None)
  Receive Date: 20120203
  Receipt Date: 20120130
  Transmission Date: 20120608
  Serious: Yes (Other)
  Sender: FDA-Public Use
  Company Number: SE-PFIZER INC-2012023948

PATIENT
  Age: 47 Year
  Sex: Female

DRUGS (1)
  1. LYRICA [Suspect]
     Indication: PAIN
     Dosage: UNK
     Dates: end: 20110912

REACTIONS (5)
  - VISUAL IMPAIRMENT [None]
  - PAIN [None]
  - PARAESTHESIA [None]
  - EYE PAIN [None]
  - NEUROPATHY PERIPHERAL [None]
